FAERS Safety Report 8106556-X (Version None)
Quarter: 2012Q1

REPORT INFORMATION
  Report Type: 
  Country: None (occurrence: None)
  Receive Date: 20120202
  Receipt Date: 20120125
  Transmission Date: 20120608
  Serious: Yes (Hospitalization, Other)
  Sender: FDA-Public Use
  Company Number: US-BAYER-201039716NA

PATIENT
  Age: 47 Year
  Sex: Female
  Weight: 59 kg

DRUGS (19)
  1. DROSPIRENONE AND ETHINYL ESTRADIOL [Suspect]
     Indication: CONTRACEPTION
     Dosage: UNK
     Dates: start: 20081001, end: 20100201
  2. LEVAQUIN [Concomitant]
     Dosage: UNK
     Dates: start: 20100214
  3. YASMIN [Suspect]
     Indication: CONTRACEPTION
     Dosage: UNK
     Dates: start: 20060501, end: 20081001
  4. DROSPIRENONE AND ETHINYL ESTRADIOL [Suspect]
     Indication: MENSTRUATION IRREGULAR
  5. ZINC SULFATE [Concomitant]
  6. FLAGYL [Concomitant]
     Dosage: UNK
     Dates: start: 20100214
  7. L-LYSINE [Concomitant]
  8. GLUCOSAMINE HYDROCHLORIDE [Concomitant]
  9. DILAUDID [Concomitant]
     Dosage: UNK
     Dates: start: 20100214
  10. PROTONIX [Concomitant]
  11. YASMIN [Suspect]
     Indication: PREMENSTRUAL SYNDROME
  12. YASMIN [Suspect]
     Indication: MENSTRUATION IRREGULAR
  13. DROSPIRENONE AND ETHINYL ESTRADIOL [Suspect]
     Indication: PREMENSTRUAL SYNDROME
  14. IBUPROFEN (ADVIL) [Concomitant]
  15. VITAMIN D [Concomitant]
  16. ONE DAILY [VIT C,B12,D2,B9,FE+,B3,B6,RETINOL,B2,B1 HCL,VIT E,ZN+] [Concomitant]
  17. CALCIUM [Concomitant]
  18. MAGNESIUM [Concomitant]
  19. ONDANSETRON HCL [Concomitant]
     Dosage: UNK
     Dates: start: 20100214

REACTIONS (7)
  - DIARRHOEA [None]
  - COLITIS ISCHAEMIC [None]
  - THROMBOPHLEBITIS SUPERFICIAL [None]
  - ASTHMA [None]
  - NON-CARDIAC CHEST PAIN [None]
  - ANGINA PECTORIS [None]
  - HAEMATEMESIS [None]
